FAERS Safety Report 5907222-9 (Version None)
Quarter: 2008Q4

REPORT INFORMATION
  Report Type: 
  Country: None (occurrence: None)
  Receive Date: 20081003
  Receipt Date: 20080923
  Transmission Date: 20090506
  Serious: Yes (Hospitalization, Other)
  Sender: FDA-Public Use
  Company Number: US-ROCHE-579148

PATIENT
  Sex: Female

DRUGS (2)
  1. PEG-INTERFERON A-2A (RO 25-8310) [Suspect]
     Dosage: FORM: PRE-FILLED SYRINGE
     Route: 065
     Dates: start: 20080702, end: 20080728
  2. RIBASPHERE [Suspect]
     Route: 065
     Dates: start: 20080702, end: 20080728

REACTIONS (2)
  - HEPATIC CIRRHOSIS [None]
  - PANCYTOPENIA [None]
